FAERS Safety Report 10163658 (Version 3)
Quarter: 2014Q3

REPORT INFORMATION
  Report Type: Report from Study
  Country: DE (occurrence: NL)
  Receive Date: 20140509
  Receipt Date: 20140825
  Transmission Date: 20150326
  Serious: Yes (Death, Hospitalization, Other)
  Sender: FDA-Public Use
  Company Number: DE-ACTELION-A-NJ2009-98344

PATIENT
  Age: 51 Year
  Sex: Male

DRUGS (2)
  1. VENTAVIS [Suspect]
     Active Substance: ILOPROST
     Indication: PRODUCT USED FOR UNKNOWN INDICATION
     Dosage: 6 AMPOULES PER DAY
     Route: 065
  2. FUROSEMIDE. [Concomitant]
     Active Substance: FUROSEMIDE

REACTIONS (4)
  - Lung disorder [Unknown]
  - Feeling abnormal [Unknown]
  - Pulmonary hypertension [Unknown]
  - Cardiac arrest [Fatal]
